FAERS Safety Report 6700248-7 (Version None)
Quarter: 2010Q2

REPORT INFORMATION
  Report Type: 
  Country: None (occurrence: None)
  Receive Date: 20100426
  Receipt Date: 20100411
  Transmission Date: 20101027
  Serious: Yes (Other)
  Sender: FDA-Public Use
  Company Number: GB-ACCORD-003824

PATIENT
  Age: 57 Year
  Sex: Female
  Weight: 90 kg

DRUGS (7)
  1. SIMVASTATIN [Suspect]
     Indication: HYPERCHOLESTEROLAEMIA
     Dosage: 40.00-MG-1.00 PER/ORAL-1.0 DAYS, ORAL
     Route: 048
     Dates: end: 20091224
  2. TEMOZOLOMIDE [Suspect]
     Indication: GLIOBLASTOMA MULTIFORME
     Dosage: 150.00-MG-1.00 PER-1.0 DAYS, ORAL
     Route: 048
     Dates: start: 20091217, end: 20100104
  3. DALTEPARIN SODIUM [Concomitant]
  4. DEXAMETHASONE [Concomitant]
  5. DOMPERIDONE (DOMPERIDONE) [Concomitant]
  6. OMEPRAZOLE [Concomitant]
  7. TRIMETHOPRIM + SULFAMETHOXAZOLE [Concomitant]

REACTIONS (6)
  - ALANINE AMINOTRANSFERASE INCREASED [None]
  - BLOOD ALKALINE PHOSPHATASE INCREASED [None]
  - BLOOD BILIRUBIN INCREASED [None]
  - DRUG INTERACTION [None]
  - GAMMA-GLUTAMYLTRANSFERASE INCREASED [None]
  - HEPATIC FUNCTION ABNORMAL [None]
